FAERS Safety Report 13815751 (Version 2)
Quarter: 2022Q2

REPORT INFORMATION
  Report Type: Report from Study
  Country: CA (occurrence: CA)
  Receive Date: 20170731
  Receipt Date: 20220413
  Transmission Date: 20220721
  Serious: Yes (Hospitalization, Other)
  Sender: FDA-Public Use
  Company Number: PHHY2014CA018530

PATIENT
  Age: 62 Year
  Sex: Male

DRUGS (1)
  1. TASIGNA [Suspect]
     Active Substance: NILOTINIB
     Indication: Chronic myeloid leukaemia
     Dosage: 600 MG, QD
     Route: 065
     Dates: start: 2009, end: 2017

REACTIONS (7)
  - Arterial occlusive disease [Unknown]
  - Coronary artery occlusion [Unknown]
  - Angina pectoris [Unknown]
  - Memory impairment [Unknown]
  - Movement disorder [Unknown]
  - Pyrexia [Not Recovered/Not Resolved]
  - Malaise [Unknown]

NARRATIVE: CASE EVENT DATE: 20170523
